FAERS Safety Report 10049499 (Version 2)
Quarter: 2014Q2

REPORT INFORMATION
  Report Type: Spontaneous
  Country: JP (occurrence: JP)
  Receive Date: 20140401
  Receipt Date: 20140414
  Transmission Date: 20141212
  Serious: Yes (Hospitalization, Other)
  Sender: FDA-Public Use
  Company Number: JP-ROCHE-1370330

PATIENT
  Age: 73 Year
  Sex: Male
  Weight: 80 kg

DRUGS (17)
  1. ACTEMRA [Suspect]
     Indication: RHEUMATOID ARTHRITIS
     Route: 041
     Dates: start: 20131204, end: 20140221
  2. METHOTREXATE [Concomitant]
     Indication: RHEUMATOID ARTHRITIS
     Route: 048
     Dates: start: 20111111, end: 20111213
  3. METHOTREXATE [Concomitant]
     Indication: RHEUMATOID ARTHRITIS
     Route: 048
     Dates: start: 201103, end: 20120306
  4. METHOTREXATE [Concomitant]
     Indication: RHEUMATOID ARTHRITIS
     Route: 048
     Dates: start: 20120307, end: 20120724
  5. METHOTREXATE [Concomitant]
     Indication: RHEUMATOID ARTHRITIS
     Route: 048
     Dates: start: 20120725, end: 20130711
  6. METHOTREXATE [Concomitant]
     Indication: RHEUMATOID ARTHRITIS
     Route: 048
     Dates: start: 20130712
  7. PREDNISOLONE [Concomitant]
     Indication: RHEUMATOID ARTHRITIS
     Route: 048
     Dates: start: 20130403, end: 20130712
  8. PREDNISOLONE [Concomitant]
     Indication: RHEUMATOID ARTHRITIS
     Route: 048
     Dates: start: 20130809
  9. PREDNISOLONE [Concomitant]
     Route: 041
     Dates: start: 20140313, end: 20140316
  10. LIMAPROST ALFADEX [Concomitant]
     Dosage: DRUG REPORTED AS : OPTIRAN
     Route: 048
  11. LANSOPRAZOLE [Concomitant]
     Route: 048
  12. NORVASC [Concomitant]
     Route: 048
  13. BUFFERIN (JAPAN) [Concomitant]
     Route: 048
  14. AMARYL [Concomitant]
     Route: 048
  15. VILDAGLIPTIN [Concomitant]
     Dosage: DRUG REPORTED AS : EQUA
     Route: 048
  16. HARNAL D [Concomitant]
     Route: 048
  17. CYCLOPHOSPHAMIDE [Concomitant]
     Route: 041
     Dates: start: 20140314

REACTIONS (1)
  - Interstitial lung disease [Not Recovered/Not Resolved]
